FAERS Safety Report 18588798 (Version 1)
Quarter: 2020Q4

REPORT INFORMATION
  Report Type: Spontaneous
  Country: US (occurrence: US)
  Receive Date: 20201207
  Receipt Date: 20201207
  Transmission Date: 20210114
  Serious: Yes (Hospitalization)
  Sender: FDA-Public Use
  Company Number: US-ELI_LILLY_AND_COMPANY-US202011011382

PATIENT
  Age: 65 Year
  Sex: Female
  Weight: 78.2 kg

DRUGS (1)
  1. BAMLANIVIMAB 700MG [Suspect]
     Active Substance: BAMLANIVIMAB
     Indication: COVID-19
     Dosage: 700 MG, SINGLE
     Route: 065
     Dates: start: 20201119, end: 20201119

REACTIONS (4)
  - Stress cardiomyopathy [Unknown]
  - Vomiting [Unknown]
  - Diabetic ketoacidosis [Recovered/Resolved]
  - Acute coronary syndrome [Unknown]

NARRATIVE: CASE EVENT DATE: 20201119
